FAERS Safety Report 11869283 (Version 1)
Quarter: 2015Q4

REPORT INFORMATION
  Report Type: Spontaneous
  Country: US (occurrence: US)
  Receive Date: 20151226
  Receipt Date: 20151226
  Transmission Date: 20160305
  Serious: Yes (Other)
  Sender: FDA-Public Use
  Company Number: PHEH2015US026777

PATIENT

DRUGS (1)
  1. FEMARA [Suspect]
     Active Substance: LETROZOLE
     Indication: PRODUCT USED FOR UNKNOWN INDICATION
     Route: 065

REACTIONS (6)
  - Gastrointestinal toxicity [Unknown]
  - Liver function test abnormal [Unknown]
  - Clostridium difficile infection [Unknown]
  - Abdominal distension [Unknown]
  - Hepatic enzyme abnormal [Unknown]
  - Disease progression [Unknown]
